FAERS Safety Report 9077032 (Version 1)
Quarter: 2013Q1

REPORT INFORMATION
  Report Type: Report from Study
  Country: US (occurrence: US)
  Receive Date: 20130129
  Receipt Date: 20130129
  Transmission Date: 20140127
  Serious: No
  Sender: FDA-Public Use
  Company Number: US-ABBOTT-12P-163-0931126-00

PATIENT
  Age: 73 Year
  Sex: Male

DRUGS (17)
  1. HUMIRA 40 MG/0.8 ML PEN [Suspect]
     Indication: CROHN^S DISEASE
     Dates: start: 20120403, end: 20120403
  2. HUMIRA 40 MG/0.8 ML PEN [Suspect]
     Dates: start: 20120417, end: 20120417
  3. HUMIRA 40 MG/0.8 ML PEN [Suspect]
     Dates: end: 20120530
  4. MULTIVITAMIN [Concomitant]
     Indication: ROUTINE HEALTH MAINTENANCE
  5. MULTIVITAMIN [Concomitant]
     Indication: BLOOD IRON DECREASED
  6. ASACOL [Concomitant]
     Indication: CROHN^S DISEASE
     Dosage: 4 PILLS TWICE DAILY
  7. LISINOPRIL [Concomitant]
     Indication: HYPERTENSION
     Route: 048
  8. FLOMAX [Concomitant]
     Indication: URINARY TRACT DISORDER
     Dosage: 1 PILL 1 PER DAY
     Route: 048
  9. FLOMAX [Concomitant]
     Indication: PROSTATIC DISORDER
  10. SYNTHROID [Concomitant]
     Indication: HYPOTHYROIDISM
     Dosage: DAILY
  11. UNSPECIFIED INGREDIENT [Concomitant]
     Indication: PRODUCT USED FOR UNKNOWN INDICATION
  12. HIGH BLOOD PRESSURE PILL(S) [Concomitant]
     Indication: PRODUCT USED FOR UNKNOWN INDICATION
     Dosage: DAILY
  13. PREVACID [Concomitant]
     Indication: PRODUCT USED FOR UNKNOWN INDICATION
     Dosage: DAILY
  14. VITAMIN D [Concomitant]
     Indication: ROUTINE HEALTH MAINTENANCE
  15. VITAMIN E [Concomitant]
     Indication: ROUTINE HEALTH MAINTENANCE
  16. VITAMIN C [Concomitant]
     Indication: ROUTINE HEALTH MAINTENANCE
  17. VITAMIN B12 [Concomitant]
     Indication: ROUTINE HEALTH MAINTENANCE

REACTIONS (4)
  - Haematochezia [Not Recovered/Not Resolved]
  - Drug ineffective [Not Recovered/Not Resolved]
  - Abdominal pain [Not Recovered/Not Resolved]
  - Diarrhoea [Not Recovered/Not Resolved]
